FAERS Safety Report 16257218 (Version 2)
Quarter: 2019Q2

REPORT INFORMATION
  Report Type: Spontaneous
  Country: GB (occurrence: GB)
  Receive Date: 20190430
  Receipt Date: 20190507
  Transmission Date: 20190711
  Serious: Yes (Other)
  Sender: FDA-Public Use
  Company Number: GB-TEVA-2019-GB-1043907

PATIENT
  Age: 55 Year
  Sex: Male

DRUGS (1)
  1. OXYCODONE [Suspect]
     Active Substance: OXYCODONE
     Indication: PAIN
     Dosage: INCREASING. CURRENTLY Q1HR
     Route: 051
     Dates: start: 20180901, end: 20190327

REACTIONS (1)
  - Hypoglycaemia [Recovered/Resolved with Sequelae]

NARRATIVE: CASE EVENT DATE: 20190325
